FAERS Safety Report 10041394 (Version 3)
Quarter: 2014Q2

REPORT INFORMATION
  Report Type: Report from Study
  Country: US (occurrence: US)
  Receive Date: 20140327
  Receipt Date: 20140626
  Transmission Date: 20141212
  Serious: No
  Sender: FDA-Public Use
  Company Number: PHEH2014US006000

PATIENT
  Sex: Female

DRUGS (9)
  1. TASIGNA [Suspect]
     Indication: CHRONIC MYELOID LEUKAEMIA
     Dosage: 300 MG, BID
     Route: 048
     Dates: start: 20131228
  2. TASIGNA [Suspect]
     Dosage: 300 MG, BID
     Route: 048
     Dates: start: 20140123
  3. TASIGNA [Suspect]
     Dosage: TWO CAPSULES (300 MG), TWICE DAILY
     Route: 048
     Dates: start: 20140320
  4. ZOTRAN [Concomitant]
     Dosage: UNK UKN, UNK
  5. PROZAC [Concomitant]
     Dosage: UNK UKN, UNK
  6. PEPCID [Concomitant]
     Dosage: UNK UKN, UNK
  7. ZOFRAN [Concomitant]
     Dosage: UNK UKN, UNK
  8. OMNARIS [Concomitant]
     Dosage: UNK UKN, UNK
  9. DULCOLAX [Concomitant]
     Dosage: UNK UKN, UNK

REACTIONS (4)
  - Rosacea [Unknown]
  - Sciatica [Unknown]
  - Constipation [Unknown]
  - Memory impairment [Unknown]
